FAERS Safety Report 23691026 (Version 1)
Quarter: 2024Q2

REPORT INFORMATION
  Report Type: Spontaneous
  Country: GB (occurrence: GB)
  Receive Date: 20240401
  Receipt Date: 20240401
  Transmission Date: 20240715
  Serious: Yes (Hospitalization)
  Sender: FDA-Public Use
  Company Number: None

PATIENT
  Age: 47 Year
  Sex: Female
  Weight: 60 kg

DRUGS (19)
  1. CITALOPRAM [Suspect]
     Active Substance: CITALOPRAM\CITALOPRAM HYDROBROMIDE
     Indication: Product used for unknown indication
     Dosage: DOSE: TAKE ONE TABLET EACH MORNING?STOP DATE: 2024
     Route: 048
     Dates: start: 20240221
  2. THIAMINE [Concomitant]
     Active Substance: THIAMINE
     Indication: Product used for unknown indication
     Dosage: TIME INTERVAL: 0.33333333 DAYS
     Route: 065
     Dates: start: 20230718
  3. ACAMPROSATE [Concomitant]
     Active Substance: ACAMPROSATE
     Indication: Product used for unknown indication
     Dosage: TIME INTERVAL: 0.33333333 DAYS: TAKE TWO TABLETS THREE TIMES A DAY
     Route: 065
     Dates: start: 20230718
  4. KETOCONAZOLE [Concomitant]
     Active Substance: KETOCONAZOLE
     Indication: Product used for unknown indication
     Dosage: USE TO WASH HAIR TWICE A WEEK
     Route: 065
     Dates: start: 20240129, end: 20240226
  5. MIRTAZAPINE [Concomitant]
     Active Substance: MIRTAZAPINE
     Indication: Product used for unknown indication
     Dosage: TAKE ONE TABLET EACH NIGHT
     Route: 065
     Dates: start: 20231228, end: 20240226
  6. BETAMETHASONE VALERATE [Concomitant]
     Active Substance: BETAMETHASONE VALERATE
     Indication: Product used for unknown indication
     Dosage: APPLY TWICE DAILY MAXIMUM TWICE A DAY
     Route: 065
     Dates: start: 20240320
  7. ZOPICLONE [Concomitant]
     Active Substance: ZOPICLONE
     Indication: Product used for unknown indication
     Dosage: TIME INTERVAL: AS NECESSARY: TAKE 1 TABLET (IF NEEDED) AT 22HRS FOR SLEEP
     Route: 065
     Dates: start: 20240320
  8. ACYCLOVIR [Concomitant]
     Active Substance: ACYCLOVIR
     Indication: Product used for unknown indication
     Route: 065
     Dates: start: 20220117
  9. PROGESTERONE [Concomitant]
     Active Substance: PROGESTERONE
     Indication: Product used for unknown indication
     Dosage: TAKE TWO CAPSULES ONCE DAILY AT BEDTIME
     Route: 065
     Dates: start: 20240221
  10. ESTRADIOL [Concomitant]
     Active Substance: ESTRADIOL
     Indication: Product used for unknown indication
     Dosage: APPLY THREE PUMPS ONCE DAILY
     Route: 065
     Dates: start: 20240221
  11. POLYETHYLENE GLYCOL\POTASSIUM CHLORIDE\SODIUM BICARBONATE\SODIUM CHLOR [Concomitant]
     Active Substance: POLYETHYLENE GLYCOL\POTASSIUM CHLORIDE\SODIUM BICARBONATE\SODIUM CHLORIDE
     Indication: Product used for unknown indication
     Dosage: TAKE ONE SACHET DAILY (WHILE ISPAGHULA IS UNAVA...
     Route: 065
     Dates: start: 20231222, end: 20240121
  12. OMEPRAZOLE [Concomitant]
     Active Substance: OMEPRAZOLE
     Indication: Product used for unknown indication
     Dosage: TAKE ONE DAILY
     Route: 065
     Dates: start: 20220107
  13. HYDROCORTISONE [Concomitant]
     Active Substance: HYDROCORTISONE
     Indication: Product used for unknown indication
     Dosage: APPLY TO BE TAKEN TWICE DAILY TO EYE LIDS
     Route: 065
     Dates: start: 20240108, end: 20240109
  14. ESTRADIOL [Concomitant]
     Active Substance: ESTRADIOL
     Indication: Product used for unknown indication
     Dosage: APPLY ONE EVOREL 50 PATCH TWICE WEEKLY FOR 2 WEEKS, WITHIN 5 DAYS OF ONSET OF PERIOD
     Route: 065
     Dates: start: 20240320
  15. Cetraben [Concomitant]
     Indication: Product used for unknown indication
     Dosage: APPLY TWICE DAILY TO SCALP.
     Route: 065
     Dates: start: 20240320
  16. CYCLIZINE [Concomitant]
     Active Substance: CYCLIZINE
     Indication: Nausea
     Dosage: TIME INTERVAL: AS NECESSARY: TO BE TAKEN THREE TIMES DAILY WHEN REQUIRED FOR NAUSEA
     Route: 065
     Dates: start: 20240320
  17. MEBEVERINEHYDROCHLORIDE [Concomitant]
     Indication: Product used for unknown indication
     Dosage: TIME INTERVAL: 0.33333333 AS NECESSARY: TAKE ONE 3 TIMES/DAY PRN
     Route: 065
     Dates: start: 20220107
  18. HERBALS\PLANTAGO OVATA SEED [Concomitant]
     Active Substance: HERBALS\PLANTAGO OVATA SEED
     Indication: Product used for unknown indication
     Dosage: 1 OD, HUSK
     Route: 065
     Dates: start: 20220107
  19. DERMOL [Concomitant]
     Active Substance: BENZALKONIUM CHLORIDE\CHLORHEXIDINE HYDROCHLORIDE\ISOPROPYL MYRISTATE\PARAFFIN
     Indication: Product used for unknown indication
     Dosage: USE AS DIRECTED
     Route: 065
     Dates: start: 20220107

REACTIONS (6)
  - Speech disorder [Unknown]
  - Palpitations [Recovered/Resolved]
  - Mydriasis [Recovered/Resolved]
  - Confusional state [Recovered/Resolved]
  - Hyperhidrosis [Unknown]
  - Bruxism [Unknown]

NARRATIVE: CASE EVENT DATE: 20240229
